FAERS Safety Report 6516848-3 (Version None)
Quarter: 2009Q4

REPORT INFORMATION
  Report Type: 
  Country: None (occurrence: None)
  Receive Date: 20091223
  Receipt Date: 20091217
  Transmission Date: 20100525
  Serious: Yes (Hospitalization)
  Sender: FDA-Public Use
  Company Number: PHHO2009KR09501

PATIENT
  Sex: Male
  Weight: 60 kg

DRUGS (2)
  1. AFINITOR [Suspect]
     Indication: METASTATIC RENAL CELL CARCINOMA
     Dosage: 10 MG / DAILY
     Route: 048
     Dates: start: 20090422, end: 20090727
  2. OLMETEC [Concomitant]
     Indication: HYPERTENSION
     Dosage: UNK
     Dates: start: 20080507, end: 20090801

REACTIONS (13)
  - AZOTAEMIA [None]
  - BLOOD CREATININE INCREASED [None]
  - BLOOD UREA INCREASED [None]
  - CENTRAL VENOUS CATHETER REMOVAL [None]
  - CENTRAL VENOUS CATHETERISATION [None]
  - FATIGUE [None]
  - HYPERKALAEMIA [None]
  - INTERSTITIAL LUNG DISEASE [None]
  - OEDEMA PERIPHERAL [None]
  - PNEUMOCYSTIS JIROVECI PNEUMONIA [None]
  - PYREXIA [None]
  - SUBCLAVIAN VEIN THROMBOSIS [None]
  - THROMBOCYTOPENIA [None]
